FAERS Safety Report 14028017 (Version 1)
Quarter: 2017Q3

REPORT INFORMATION
  Report Type: Spontaneous
  Country: US (occurrence: None)
  Receive Date: 20170930
  Receipt Date: 20170930
  Transmission Date: 20171128
  Serious: Yes (Hospitalization)
  Sender: FDA-Public Use
  Company Number: None

PATIENT
  Age: 67 Year
  Sex: Male

DRUGS (1)
  1. VANCOMYCIN [Suspect]
     Active Substance: VANCOMYCIN
     Indication: CELLULITIS
     Route: 042
     Dates: start: 20170911, end: 20170911

REACTIONS (5)
  - Pruritus [None]
  - Unevaluable event [None]
  - Urticaria [None]
  - Diarrhoea [None]
  - Chest discomfort [None]

NARRATIVE: CASE EVENT DATE: 20170912
